FAERS Safety Report 9824959 (Version 2)
Quarter: 2014Q1

REPORT INFORMATION
  Report Type: Spontaneous
  Country: US (occurrence: US)
  Receive Date: 20140117
  Receipt Date: 20140303
  Transmission Date: 20141002
  Serious: Yes (Other)
  Sender: FDA-Public Use
  Company Number: US-JNJFOC-20140105971

PATIENT
  Age: 57 Year
  Sex: Female
  Weight: 107.05 kg

DRUGS (21)
  1. REMICADE [Suspect]
     Indication: OSTEOPOROSIS
     Route: 042
     Dates: start: 20131023
  2. REMICADE [Suspect]
     Indication: OSTEOPOROSIS
     Route: 042
     Dates: end: 201308
  3. REMICADE [Suspect]
     Indication: OSTEOPOROSIS
     Route: 042
     Dates: start: 201308
  4. REMICADE [Suspect]
     Indication: OSTEOPOROSIS
     Route: 042
     Dates: start: 2006
  5. REMICADE [Suspect]
     Indication: OSTEOPOROSIS
     Route: 042
     Dates: start: 200509, end: 2006
  6. REMICADE [Suspect]
     Indication: ANKYLOSING SPONDYLITIS
     Route: 042
     Dates: start: 20131023
  7. REMICADE [Suspect]
     Indication: ANKYLOSING SPONDYLITIS
     Route: 042
     Dates: start: 2006
  8. REMICADE [Suspect]
     Indication: ANKYLOSING SPONDYLITIS
     Route: 042
     Dates: end: 201308
  9. REMICADE [Suspect]
     Indication: ANKYLOSING SPONDYLITIS
     Route: 042
     Dates: start: 201308
  10. REMICADE [Suspect]
     Indication: ANKYLOSING SPONDYLITIS
     Route: 042
     Dates: start: 200509, end: 2006
  11. REMICADE [Suspect]
     Indication: PSORIATIC ARTHROPATHY
     Route: 042
     Dates: start: 2006
  12. REMICADE [Suspect]
     Indication: PSORIATIC ARTHROPATHY
     Route: 042
     Dates: end: 201308
  13. REMICADE [Suspect]
     Indication: PSORIATIC ARTHROPATHY
     Route: 042
     Dates: start: 201308
  14. REMICADE [Suspect]
     Indication: PSORIATIC ARTHROPATHY
     Route: 042
     Dates: start: 200509, end: 2006
  15. REMICADE [Suspect]
     Indication: PSORIATIC ARTHROPATHY
     Route: 042
     Dates: start: 20131023
  16. ASPIRIN [Concomitant]
     Route: 048
  17. PRAVASTATIN [Concomitant]
     Indication: BLOOD CHOLESTEROL
     Route: 048
  18. HYDROCODONE [Concomitant]
     Indication: PAIN
     Route: 048
  19. TOLTERODINE [Concomitant]
     Indication: INCONTINENCE
     Route: 048
     Dates: start: 201302
  20. LEFLUNOMIDE [Concomitant]
     Indication: ARTHRITIS
     Route: 048
  21. AMLODIPINE BESYLATE [Concomitant]
     Indication: HYPERTENSION
     Route: 048
     Dates: start: 2011

REACTIONS (8)
  - Thoracic vertebral fracture [Unknown]
  - Bladder operation [Unknown]
  - Nausea [Recovered/Resolved]
  - Body height decreased [Unknown]
  - Off label use [Unknown]
  - Rash macular [Not Recovered/Not Resolved]
  - Drug effect decreased [Unknown]
  - Lethargy [Not Recovered/Not Resolved]
